FAERS Safety Report 6176139-X (Version None)
Quarter: 2009Q2

REPORT INFORMATION
  Report Type: 
  Country: None (occurrence: None)
  Receive Date: 20090501
  Receipt Date: 20090420
  Transmission Date: 20091009
  Serious: Yes (Other)
  Sender: FDA-Public Use
  Company Number: JP-GENENTECH-281207

PATIENT
  Sex: Male

DRUGS (1)
  1. AVASTIN [Suspect]
     Indication: LARGE INTESTINE CARCINOMA
     Dosage: 5 MG/KG, Q2W
     Route: 041
     Dates: start: 20090324

REACTIONS (2)
  - PULMONARY EMBOLISM [None]
  - VASCULITIS [None]
